FAERS Safety Report 10927857 (Version 1)
Quarter: 2015Q1

REPORT INFORMATION
  Report Type: Spontaneous
  Country: US (occurrence: US)
  Receive Date: 20150319
  Receipt Date: 20150319
  Transmission Date: 20150721
  Serious: Yes (Other)
  Sender: FDA-Public Use
  Company Number: US-AMGEN-USASP2015023756

PATIENT
  Age: 77 Year
  Sex: Female

DRUGS (5)
  1. METHOTREXATE [Concomitant]
     Active Substance: METHOTREXATE
     Indication: RHEUMATOID ARTHRITIS
     Dosage: PILL
     Route: 048
  2. VITAMIN D                          /00107901/ [Concomitant]
     Active Substance: ERGOCALCIFEROL
  3. VITAMIN E                          /00110501/ [Concomitant]
  4. PROLIA [Suspect]
     Active Substance: DENOSUMAB
     Indication: PROPHYLAXIS
     Dosage: UNK UNK, UNK
     Route: 065
     Dates: start: 20150108
  5. CALCIUM [Concomitant]
     Active Substance: CALCIUM

REACTIONS (11)
  - Chills [Not Recovered/Not Resolved]
  - Pain [Unknown]
  - Activities of daily living impaired [Unknown]
  - Joint arthroplasty [Unknown]
  - Muscular weakness [Unknown]
  - Myalgia [Not Recovered/Not Resolved]
  - Feeling abnormal [Unknown]
  - Arthrodesis [Unknown]
  - Mobility decreased [Unknown]
  - Arthralgia [Unknown]
  - Pain in extremity [Unknown]

NARRATIVE: CASE EVENT DATE: 201502
